FAERS Safety Report 21425676 (Version 4)
Quarter: 2022Q4

REPORT INFORMATION
  Report Type: Spontaneous
  Country: ES (occurrence: ES)
  Receive Date: 20221008
  Receipt Date: 20221207
  Transmission Date: 20230112
  Serious: Yes (Hospitalization)
  Sender: FDA-Public Use
  Company Number: ES-Accord-280344

PATIENT
  Age: 77 Year
  Sex: Male
  Weight: 85.70 kg

DRUGS (34)
  1. GEMCITABINE HYDROCHLORIDE [Suspect]
     Active Substance: GEMCITABINE HYDROCHLORIDE
     Indication: Diffuse large B-cell lymphoma stage III
     Dosage: 1Q2W
     Route: 042
     Dates: start: 20220831, end: 20220914
  2. OXALIPLATIN [Suspect]
     Active Substance: OXALIPLATIN
     Indication: Diffuse large B-cell lymphoma stage III
     Dosage: 1Q2W
     Route: 042
     Dates: start: 20220831, end: 20220914
  3. EPCORITAMAB [Suspect]
     Active Substance: EPCORITAMAB
     Indication: Diffuse large B-cell lymphoma stage III
     Dosage: PRIMING DOSE, SINGLE
     Route: 058
     Dates: start: 20220831, end: 20220831
  4. ONDANSETRON [Concomitant]
     Active Substance: ONDANSETRON
     Indication: Premedication
     Route: 042
     Dates: start: 20220914, end: 20220914
  5. DEXCHLORPHENIRAMINE MALEATE [Concomitant]
     Active Substance: DEXCHLORPHENIRAMINE MALEATE
     Indication: Premedication
     Route: 042
     Dates: start: 20220914, end: 20220914
  6. ACETAMINOPHEN [Concomitant]
     Active Substance: ACETAMINOPHEN
     Indication: Premedication
     Route: 042
     Dates: start: 20220914, end: 20220914
  7. DEXAMETHASONE [Concomitant]
     Active Substance: DEXAMETHASONE
     Indication: Prophylaxis
     Dosage: 12 MG AND 16 MG
     Route: 042
     Dates: start: 20220914
  8. ACYCLOVIR [Concomitant]
     Active Substance: ACYCLOVIR
     Dates: start: 202204, end: 20220924
  9. AMLODIPINE [Concomitant]
     Active Substance: AMLODIPINE BESYLATE
     Dates: start: 2017, end: 20220906
  10. ASPIRIN [Concomitant]
     Active Substance: ASPIRIN
     Dates: start: 2021, end: 20220919
  11. BROMAZEPAM [Concomitant]
     Active Substance: BROMAZEPAM
     Dates: start: 2018, end: 20220919
  12. CARTEOLOL [Concomitant]
     Active Substance: CARTEOLOL
     Dates: start: 2017, end: 20220919
  13. LEUCOVORIN [Concomitant]
     Active Substance: LEUCOVORIN
     Dates: start: 202204, end: 20220919
  14. INDAPAMIDE [Concomitant]
     Active Substance: INDAPAMIDE
     Dates: start: 2017, end: 20220919
  15. LATANOPROST [Concomitant]
     Active Substance: LATANOPROST
     Dates: start: 202204, end: 20220919
  16. POLYETHYLENE GLYCOLS [Concomitant]
     Active Substance: POLYETHYLENE GLYCOLS
     Dates: start: 20200526, end: 20220919
  17. OMEPRAZOLE [Concomitant]
     Active Substance: OMEPRAZOLE
     Dates: start: 2018, end: 20220919
  18. ONDANSETRON [Concomitant]
     Active Substance: ONDANSETRON
     Dates: start: 202208, end: 20220919
  19. SULFAMETHOXAZOLE [Concomitant]
     Active Substance: SULFAMETHOXAZOLE
     Dates: start: 202204, end: 20220919
  20. TRIMETHOPRIM [Concomitant]
     Active Substance: TRIMETHOPRIM
     Dates: start: 202204, end: 20220919
  21. ACTOCORTIN [Concomitant]
     Dates: start: 20220914, end: 20220914
  22. METHYLPREDNISOLONE [Concomitant]
     Active Substance: METHYLPREDNISOLONE
     Dates: start: 20220914, end: 20220914
  23. BEMIPARIN SODIUM [Concomitant]
     Active Substance: BEMIPARIN SODIUM
     Dates: start: 20220920, end: 20220924
  24. CEFEPIME [Concomitant]
     Active Substance: CEFEPIME HYDROCHLORIDE
     Dates: start: 20220920, end: 20220922
  25. ENOXAPARIN SODIUM [Concomitant]
     Active Substance: ENOXAPARIN SODIUM
     Dates: start: 20220914, end: 20220919
  26. LORAZEPAM [Concomitant]
     Active Substance: LORAZEPAM
     Dates: start: 20220920, end: 20220924
  27. METOCLOPRAMIDE [Concomitant]
     Active Substance: METOCLOPRAMIDE
     Dates: start: 20220920, end: 20220924
  28. ACETAMINOPHEN [Concomitant]
     Active Substance: ACETAMINOPHEN
     Dates: start: 20220920, end: 20220924
  29. POTASSIUM CHLORIDE [Concomitant]
     Active Substance: POTASSIUM CHLORIDE
     Dates: start: 20220922, end: 20220924
  30. PROTEIN [Concomitant]
     Active Substance: PROTEIN
     Dates: start: 20220921, end: 20220924
  31. DEXAMETHASONE [Concomitant]
     Active Substance: DEXAMETHASONE
     Indication: Prophylaxis
     Dosage: 16 MG
     Route: 048
     Dates: start: 20220915, end: 20220917
  32. ONDANSETRON [Concomitant]
     Active Substance: ONDANSETRON
     Indication: Premedication
     Route: 042
     Dates: start: 202208, end: 20220924
  33. EPCORITAMAB [Suspect]
     Active Substance: EPCORITAMAB
     Indication: Diffuse large B-cell lymphoma stage III
     Dosage: INTERMEDIATE DOSE, SINGLE
     Route: 058
     Dates: start: 20220907, end: 20220907
  34. EPCORITAMAB [Suspect]
     Active Substance: EPCORITAMAB
     Indication: Diffuse large B-cell lymphoma stage III
     Dosage: FULL DOSE, SINGLE
     Route: 058
     Dates: start: 20220914, end: 20220914

REACTIONS (2)
  - Cytokine release syndrome [Unknown]
  - Condition aggravated [Recovered/Resolved]

NARRATIVE: CASE EVENT DATE: 20220918
